FAERS Safety Report 6466999-7 (Version None)
Quarter: 2009Q4

REPORT INFORMATION
  Report Type: 
  Country: None (occurrence: None)
  Receive Date: 20091202
  Receipt Date: 20091120
  Transmission Date: 20100525
  Serious: Yes (Hospitalization, Other)
  Sender: FDA-Public Use
  Company Number: TR-ELI_LILLY_AND_COMPANY-TR200909001146

PATIENT
  Age: 44 Year
  Sex: Female

DRUGS (3)
  1. PROZAC [Suspect]
     Dosage: UNK, UNKNOWN
     Route: 065
  2. CYCLOSPORINE [Concomitant]
  3. ACITRETIN [Concomitant]

REACTIONS (2)
  - DRUG INTERACTION [None]
  - PUSTULAR PSORIASIS [None]
